FAERS Safety Report 15515478 (Version 1)
Quarter: 2018Q4

REPORT INFORMATION
  Report Type: Spontaneous
  Country: US (occurrence: US)
  Receive Date: 20181017
  Receipt Date: 20181017
  Transmission Date: 20190205
  Serious: No
  Sender: FDA-Public Use
  Company Number: US-009507513-1809USA007904

PATIENT

DRUGS (1)
  1. TEMODAR [Suspect]
     Active Substance: TEMOZOLOMIDE
     Dosage: 100 MG ONCE DAILY
     Route: 048

REACTIONS (3)
  - Product dose omission [Unknown]
  - Product availability issue [Unknown]
  - No adverse event [Unknown]
